FAERS Safety Report 15386995 (Version 1)
Quarter: 2018Q3

REPORT INFORMATION
  Report Type: Spontaneous
  Country: CA (occurrence: US)
  Receive Date: 20180914
  Receipt Date: 20180914
  Transmission Date: 20181010
  Serious: Yes (Other)
  Sender: FDA-Public Use
  Company Number: CA-SHIRE-US201834184

PATIENT
  Sex: Female

DRUGS (2)
  1. MORPHINE [Concomitant]
     Active Substance: MORPHINE
     Indication: PRODUCT USED FOR UNKNOWN INDICATION
  2. XIIDRA [Suspect]
     Active Substance: LIFITEGRAST
     Indication: DRY EYE
     Dosage: UNK
     Route: 047
     Dates: start: 201804, end: 201805

REACTIONS (12)
  - Pharyngitis [Unknown]
  - Neck pain [Unknown]
  - Vision blurred [Unknown]
  - Instillation site pruritus [Unknown]
  - Breast cancer [Unknown]
  - Sedative therapy [Unknown]
  - Headache [Unknown]
  - Sinusitis [Unknown]
  - Chest pain [Unknown]
  - Gastric disorder [Unknown]
  - Dyspnoea [Unknown]
  - Drug ineffective [Unknown]
